FAERS Safety Report 13796936 (Version 1)
Quarter: 2017Q3

REPORT INFORMATION
  Report Type: Spontaneous
  Country: US (occurrence: US)
  Receive Date: 20170726
  Receipt Date: 20170726
  Transmission Date: 20171127
  Serious: Yes (Other)
  Sender: FDA-Public Use
  Company Number: US-AMGEN-USASP2017109545

PATIENT
  Age: 69 Year
  Sex: Male

DRUGS (12)
  1. FENOFIBRATE. [Concomitant]
     Active Substance: FENOFIBRATE
     Dosage: 48 MG, UNK
  2. METOPROLOL. [Concomitant]
     Active Substance: METOPROLOL
     Dosage: 50 MG, QD
  3. ASPIRINE [Concomitant]
     Active Substance: ASPIRIN
     Dosage: 81 MG, QD
  4. VITAMIN D3 [Concomitant]
     Active Substance: CHOLECALCIFEROL
     Dosage: 500 IU, UNK
  5. ENBREL [Suspect]
     Active Substance: ETANERCEPT
     Dosage: 50 MG, 2 TIMES/WK
     Route: 065
     Dates: start: 201707
  6. FISH OIL [Concomitant]
     Active Substance: FISH OIL
     Dosage: 1600 MG, UNK
  7. FOLIC ACID. [Concomitant]
     Active Substance: FOLIC ACID
     Dosage: 400 MUG, UNK
  8. FLAXSEED [Concomitant]
     Active Substance: FLAX SEED
     Dosage: UNK
  9. ENBREL [Suspect]
     Active Substance: ETANERCEPT
     Indication: PSORIASIS
     Dosage: 50 MG, 2 TIMES/WK
     Route: 065
     Dates: start: 2015, end: 2017
  10. MILK THISTLE [Concomitant]
     Active Substance: MILK THISTLE
     Dosage: 150 MG, UNK
  11. ATORVASTATIN [Concomitant]
     Active Substance: ATORVASTATIN
     Dosage: 40 MG, QD
  12. FIBER [Concomitant]
     Active Substance: PSYLLIUM HUSK

REACTIONS (2)
  - Psoriasis [Not Recovered/Not Resolved]
  - Wrist surgery [Unknown]

NARRATIVE: CASE EVENT DATE: 2017
